FAERS Safety Report 4617516-5 (Version None)
Quarter: 2005Q1

REPORT INFORMATION
  Report Type: 
  Country: None (occurrence: None)
  Receive Date: 20050314
  Receipt Date: 20050303
  Transmission Date: 20050727
  Serious: Yes (Other)
  Sender: FDA-Public Use
  Company Number: 200510101BCA

PATIENT
  Age: 77 Year
  Sex: Male

DRUGS (7)
  1. GAMUNEX [Suspect]
     Indication: DEMYELINATING POLYNEUROPATHY
     Dosage: 30 G, TOTAL DAILY, INTRAVENOUS
     Route: 042
     Dates: start: 20050222, end: 20050227
  2. TAMSULOSIN [Suspect]
  3. ASPIRIN [Concomitant]
  4. AVALIDE [Concomitant]
  5. HEPARIN [Concomitant]
  6. ATIVAN [Concomitant]
  7. MORPHINE [Concomitant]

REACTIONS (3)
  - CHILLS [None]
  - DYSPNOEA [None]
  - INFUSION RELATED REACTION [None]
